FAERS Safety Report 5704809-3 (Version None)
Quarter: 2008Q2

REPORT INFORMATION
  Report Type: 
  Country: None (occurrence: None)
  Receive Date: 20080414
  Receipt Date: 20080402
  Transmission Date: 20081010
  Serious: Yes (Life-Threatening, Other)
  Sender: FDA-Public Use
  Company Number: TR-AMGEN-US264137

PATIENT
  Sex: Male
  Weight: 80 kg

DRUGS (5)
  1. ENBREL [Suspect]
     Indication: RHEUMATOID ARTHRITIS
     Route: 058
     Dates: start: 20071120, end: 20080129
  2. NAPROSYN [Concomitant]
     Route: 065
  3. METHOTREXATE [Concomitant]
     Route: 065
  4. DELTACORTRIL [Concomitant]
     Dosage: 2-5 MG
     Route: 065
  5. SALAZOPYRIN [Concomitant]
     Dosage: 3X 500
     Route: 065

REACTIONS (1)
  - PULMONARY TUBERCULOSIS [None]
